FAERS Safety Report 11863950 (Version 1)
Quarter: 2015Q4

REPORT INFORMATION
  Report Type: Spontaneous
  Country: FR (occurrence: FR)
  Receive Date: 20151223
  Receipt Date: 20151223
  Transmission Date: 20160305
  Serious: Yes (Other)
  Sender: FDA-Public Use
  Company Number: FR-GLAXOSMITHKLINE-FR2015GSK169147

PATIENT
  Age: 90 Year
  Sex: Male
  Weight: 80 kg

DRUGS (7)
  1. PREVISCAN [Concomitant]
     Active Substance: FLUINDIONE
     Dosage: UNK
     Route: 048
  2. AMLODIPINE [Concomitant]
     Active Substance: AMLODIPINE BESYLATE
     Dosage: 10 MG, 1D
     Route: 048
  3. COMBODART [Suspect]
     Active Substance: DUTASTERIDE\TAMSULOSIN
     Indication: PRODUCT USED FOR UNKNOWN INDICATION
     Dosage: 1 UNK, CAPSULE,  QD
     Route: 048
     Dates: start: 20151106, end: 20151119
  4. FRUSEMIDE [Concomitant]
     Active Substance: FUROSEMIDE
     Dosage: 40 MG, 1D
     Route: 048
  5. RAMIPRIL. [Concomitant]
     Active Substance: RAMIPRIL
     Dosage: UNK
     Route: 048
  6. HAVLANE [Concomitant]
     Active Substance: LOPRAZOLAM
     Dosage: 1 UNK, 1D
  7. CARDENSIEL [Concomitant]
     Active Substance: BISOPROLOL FUMARATE
     Dosage: UNK

REACTIONS (6)
  - Delirium [Recovered/Resolved]
  - Decreased activity [Recovered/Resolved]
  - Product quality issue [Unknown]
  - Somnolence [Recovered/Resolved]
  - Ill-defined disorder [Recovered/Resolved]
  - Disorientation [Recovered/Resolved]

NARRATIVE: CASE EVENT DATE: 20151108
